FAERS Safety Report 5719411-7 (Version None)
Quarter: 2008Q2

REPORT INFORMATION
  Report Type: 
  Country: None (occurrence: None)
  Receive Date: 20080428
  Receipt Date: 20080415
  Transmission Date: 20081010
  Serious: Yes (Other)
  Sender: FDA-Public Use
  Company Number: JP-NOVOPROD-274476

PATIENT
  Age: 58 Year
  Sex: Male

DRUGS (2)
  1. PENFILL 30R CHU [Suspect]
     Indication: DRUG USE FOR UNKNOWN INDICATION
  2. PENFILL R CHU [Suspect]
     Indication: DRUG USE FOR UNKNOWN INDICATION

REACTIONS (4)
  - BRAIN INJURY [None]
  - HYPOGLYCAEMIA [None]
  - INTENTIONAL OVERDOSE [None]
  - SUICIDE ATTEMPT [None]
